FAERS Safety Report 16273900 (Version 1)
Quarter: 2019Q2

REPORT INFORMATION
  Report Type: Other
  Country: US (occurrence: US)
  Receive Date: 20190506
  Receipt Date: 20190506
  Transmission Date: 20190711
  Serious: Yes (Hospitalization, Other)
  Sender: FDA-Public Use
  Company Number: US-DEXPHARM-20190305

PATIENT
  Age: 16 Year
  Sex: Female
  Weight: 34 kg

DRUGS (5)
  1. OMEPRAZOLE. [Suspect]
     Active Substance: OMEPRAZOLE
  2. LEVETIRACETAM. [Concomitant]
     Active Substance: LEVETIRACETAM
     Dosage: 1000 MG IN THE MORNING, 1500 MG EVERY EVENING
  3. OXCARBAZEPINE. [Interacting]
     Active Substance: OXCARBAZEPINE
     Dosage: OXCARBAZEPINE WAS INITIATED AND TITRATED TO 450 MG BY MOUTH EVERY 12 HOURS (26 MG/KG/DAY)
  4. CLOBAZAM. [Interacting]
     Active Substance: CLOBAZAM
     Dosage: 0.37 MG/KG/DAY
     Route: 048
  5. CLOBAZAM. [Interacting]
     Active Substance: CLOBAZAM
     Dosage: 0.22 MG/KG/DAY
     Route: 048

REACTIONS (4)
  - Toxicity to various agents [Recovered/Resolved]
  - Hypothermia [Recovered/Resolved]
  - Drug interaction [Recovered/Resolved]
  - Cardiogenic shock [Recovering/Resolving]
